FAERS Safety Report 13888273 (Version 1)
Quarter: 2017Q3

REPORT INFORMATION
  Report Type: Spontaneous
  Country: US (occurrence: US)
  Receive Date: 20170822
  Receipt Date: 20170822
  Transmission Date: 20171127
  Serious: No
  Sender: FDA-Public Use
  Company Number: US-ROCHE-1550755

PATIENT
  Sex: Female

DRUGS (13)
  1. LORAZEPAM. [Concomitant]
     Active Substance: LORAZEPAM
  2. GABAPENTIN. [Concomitant]
     Active Substance: GABAPENTIN
  3. METHOTREXATE. [Concomitant]
     Active Substance: METHOTREXATE
  4. ACTEMRA [Suspect]
     Active Substance: TOCILIZUMAB
     Indication: RHEUMATOID ARTHRITIS
     Route: 058
     Dates: start: 20140801
  5. FLEXERIL [Concomitant]
     Active Substance: CYCLOBENZAPRINE HYDROCHLORIDE
  6. IBUPROFEN. [Concomitant]
     Active Substance: IBUPROFEN
  7. PREDNISOLONE. [Concomitant]
     Active Substance: PREDNISOLONE
  8. SULFASALAZINE. [Concomitant]
     Active Substance: SULFASALAZINE
  9. FAMOTIDINE. [Concomitant]
     Active Substance: FAMOTIDINE
  10. LOSARTAN POTASSIUM. [Concomitant]
     Active Substance: LOSARTAN POTASSIUM
  11. VITAMIN B6 [Concomitant]
     Active Substance: PYRIDOXINE HYDROCHLORIDE
  12. FOLIC ACID. [Concomitant]
     Active Substance: FOLIC ACID
  13. SIMVASTATIN. [Concomitant]
     Active Substance: SIMVASTATIN

REACTIONS (2)
  - Seasonal allergy [Unknown]
  - Insomnia [Unknown]
